FAERS Safety Report 6288377-6 (Version None)
Quarter: 2009Q3

REPORT INFORMATION
  Report Type: 
  Country: None (occurrence: None)
  Receive Date: 20090729
  Receipt Date: 20090724
  Transmission Date: 20100115
  Serious: Yes (Other)
  Sender: FDA-Public Use
  Company Number: GB-PFIZER INC-2009225601

PATIENT
  Age: 90 Year

DRUGS (1)
  1. INSPRA [Suspect]
     Dosage: 25 MG, UNK

REACTIONS (1)
  - HALLUCINATION [None]
